FAERS Safety Report 5123015-7 (Version None)
Quarter: 2006Q4

REPORT INFORMATION
  Report Type: 
  Country: None (occurrence: None)
  Receive Date: 20061004
  Receipt Date: 20061004
  Transmission Date: 20070319
  Serious: Yes (Other)
  Sender: FDA-Public Use
  Company Number: None

PATIENT
  Sex: Male
  Weight: 108 kg

DRUGS (4)
  1. ANTITHYMOCYTE GLOBULIN - RABBIT - 25MG / INJ GENZYME, CAMBRIDGE MA [Suspect]
     Indication: RENAL FAILURE CHRONIC
     Dosage: 175
     Route: 041
     Dates: start: 20060718, end: 20060718
  2. ANTITHYMOCYTE GLOBULIN - RABBIT - 25MG / INJ GENZYME, CAMBRIDGE MA [Suspect]
     Indication: RENAL TRANSPLANT
     Dosage: 175
     Route: 041
     Dates: start: 20060718, end: 20060718
  3. ANTITHYMOCYTE GLOBULIN - RABBIT - 25MG / INJ GENZYME, CAMBRIDGE MA [Suspect]
     Indication: RENAL FAILURE CHRONIC
     Dosage: 175
     Route: 041
     Dates: start: 20060719, end: 20060719
  4. ANTITHYMOCYTE GLOBULIN - RABBIT - 25MG / INJ GENZYME, CAMBRIDGE MA [Suspect]
     Indication: RENAL TRANSPLANT
     Dosage: 175
     Route: 041
     Dates: start: 20060719, end: 20060719

REACTIONS (3)
  - BRONCHOSPASM [None]
  - HYPOTENSION [None]
  - WHEEZING [None]
